FAERS Safety Report 12334967 (Version 2)
Quarter: 2016Q3

REPORT INFORMATION
  Report Type: Report from Study
  Country: US (occurrence: US)
  Receive Date: 20160504
  Receipt Date: 20160915
  Transmission Date: 20161109
  Serious: Yes (Death, Other)
  Sender: FDA-Public Use
  Company Number: US-REGENERON PHARMACEUTICALS, INC.-2016-16601

PATIENT

DRUGS (2)
  1. EYLEA [Suspect]
     Active Substance: AFLIBERCEPT
     Indication: MACULAR DEGENERATION
     Dosage: 1 DOSE, MONTHLY
     Route: 031
     Dates: start: 20141210
  2. EYLEA [Suspect]
     Active Substance: AFLIBERCEPT
     Dosage: 1 DOSE, MONTHLY
     Route: 031
     Dates: start: 20150915, end: 20150915

REACTIONS (1)
  - Death [Fatal]

NARRATIVE: CASE EVENT DATE: 201604
